FAERS Safety Report 24317523 (Version 2)
Quarter: 2024Q4

REPORT INFORMATION
  Report Type: Spontaneous
  Country: US (occurrence: US)
  Receive Date: 20240913
  Receipt Date: 20241002
  Transmission Date: 20250114
  Serious: Yes (Other)
  Sender: BAYER
  Company Number: US-BAYER-2024A129186

PATIENT
  Age: 78 Year
  Sex: Female

DRUGS (1)
  1. GADAVIST [Suspect]
     Active Substance: GADOBUTROL
     Indication: Magnetic resonance imaging neck
     Dosage: UNK UNK, ONCE
     Dates: start: 20240907, end: 20240907

REACTIONS (11)
  - Haemorrhage urinary tract [None]
  - Dizziness [None]
  - Dysstasia [None]
  - Paraesthesia [None]
  - Erythema [None]
  - Hand deformity [None]
  - Headache [None]
  - Neck pain [None]
  - Memory impairment [None]
  - Drug hypersensitivity [None]
  - Urinary tract inflammation [None]
